FAERS Safety Report 18545633 (Version 1)
Quarter: 2020Q4

REPORT INFORMATION
  Report Type: Spontaneous
  Country: BR (occurrence: BR)
  Receive Date: 20201125
  Receipt Date: 20201125
  Transmission Date: 20210114
  Serious: Yes (Other)
  Sender: FDA-Public Use
  Company Number: NVSC2020BR311711

PATIENT
  Age: 45 Year
  Sex: Female

DRUGS (3)
  1. ALPELISIB [Suspect]
     Active Substance: ALPELISIB
     Indication: PRODUCT USED FOR UNKNOWN INDICATION
     Dosage: UNK
     Route: 065
     Dates: start: 202009
  2. FULVESTRANT. [Suspect]
     Active Substance: FULVESTRANT
     Indication: PRODUCT USED FOR UNKNOWN INDICATION
     Dosage: UNK
     Route: 065
     Dates: start: 202009
  3. LETROZOLE. [Suspect]
     Active Substance: LETROZOLE
     Indication: BREAST CANCER METASTATIC
     Dosage: UNK
     Route: 065
     Dates: start: 201810

REACTIONS (14)
  - Pain [Recovering/Resolving]
  - Lymphangitis [Unknown]
  - Malignant neoplasm progression [Unknown]
  - Tumour marker increased [Unknown]
  - Metastases to bone [Unknown]
  - Dyspnoea exertional [Recovering/Resolving]
  - COVID-19 [Unknown]
  - Cough [Unknown]
  - Pleural effusion [Unknown]
  - Bone swelling [Unknown]
  - Mass [Unknown]
  - Lymphangiosis carcinomatosa [Unknown]
  - Breast cancer metastatic [Unknown]
  - PIK3CA-activated mutation [Unknown]

NARRATIVE: CASE EVENT DATE: 202005
